FAERS Safety Report 17787289 (Version 1)
Quarter: 2020Q2

REPORT INFORMATION
  Report Type: Spontaneous
  Country: US (occurrence: US)
  Receive Date: 20200514
  Receipt Date: 20200514
  Transmission Date: 20200714
  Serious: No
  Sender: FDA-Public Use
  Company Number: US-RIGEL PHARMACEUTICALS, INC.-2020FOS000181

PATIENT
  Sex: Male

DRUGS (3)
  1. TAVALISSE [Suspect]
     Active Substance: FOSTAMATINIB
     Indication: THROMBOCYTOPENIA
     Dosage: 150 MG, QD
     Route: 048
     Dates: start: 20181109
  2. VITAMIN C [Concomitant]
     Active Substance: ASCORBIC ACID
     Indication: PRODUCT USED FOR UNKNOWN INDICATION
     Dosage: 500 MG, QD
  3. VITAMIN C [Concomitant]
     Active Substance: ASCORBIC ACID
     Dosage: 250 MG, QD

REACTIONS (2)
  - Product dose omission [Unknown]
  - Off label use [Unknown]
